FAERS Safety Report 6963621-8 (Version None)
Quarter: 2010Q3

REPORT INFORMATION
  Report Type: 
  Country: None (occurrence: None)
  Receive Date: 20100902
  Receipt Date: 20100820
  Transmission Date: 20110219
  Serious: Yes (Hospitalization)
  Sender: FDA-Public Use
  Company Number: US-ELI_LILLY_AND_COMPANY-US200908001695

PATIENT
  Sex: Female

DRUGS (22)
  1. FORTEO [Suspect]
     Indication: OSTEOPOROSIS
     Dosage: 20 UG, DAILY (1/D)
     Dates: start: 20081103, end: 20090101
  2. FORTEO [Suspect]
     Dosage: 20 UG, DAILY (1/D)
     Dates: start: 20090201, end: 20090101
  3. FORTEO [Suspect]
     Dosage: 20 UG, DAILY (1/D)
     Dates: start: 20090101, end: 20090101
  4. FORTEO [Suspect]
     Dosage: 20 UG, DAILY (1/D)
     Dates: start: 20090101
  5. FORTEO [Suspect]
     Dosage: 20 UG, DAILY (1/D)
  6. EVISTA [Suspect]
     Indication: OSTEOPOROSIS
     Dosage: 60 MG, DAILY (1/D)
  7. ALLERGY MEDICATION [Concomitant]
     Indication: ALLERGY TO ARTHROPOD STING
     Dosage: UNK, UNKNOWN
     Dates: start: 20040101
  8. DIOVAN [Concomitant]
  9. MAXALT-MLT [Concomitant]
     Dosage: 10 MG, UNK
  10. SANCTURA [Concomitant]
     Dosage: 60 MG, UNK
  11. DICYCLOMINE [Concomitant]
     Dosage: 10 MG, UNK
  12. AMLODIPINE [Concomitant]
     Dosage: 5 MG, UNK
  13. PRAVASTATIN SODIUM [Concomitant]
     Dosage: 20 MG, UNK
  14. CYMBALTA [Concomitant]
     Dosage: 60 MG, UNK
  15. OMEPRAZOLE [Concomitant]
     Dosage: 40 MG, UNK
  16. LORAZEPAM [Concomitant]
     Dosage: 1 MG, UNK
  17. METROGEL [Concomitant]
  18. SOLARAZE [Concomitant]
  19. VAGIFEM [Concomitant]
  20. MULTI-VITAMIN [Concomitant]
  21. FISH OIL [Concomitant]
  22. CALCIUM [Concomitant]

REACTIONS (19)
  - ANAEMIA [None]
  - ASTHENIA [None]
  - BLOOD POTASSIUM DECREASED [None]
  - BLOOD SODIUM DECREASED [None]
  - BONE PAIN [None]
  - CHRONIC OBSTRUCTIVE PULMONARY DISEASE [None]
  - DIZZINESS [None]
  - DRUG DOSE OMISSION [None]
  - DYSPNOEA [None]
  - EMPHYSEMA [None]
  - FATIGUE [None]
  - HEADACHE [None]
  - HEART RATE INCREASED [None]
  - INJECTION SITE ERYTHEMA [None]
  - INJECTION SITE PRURITUS [None]
  - INJECTION SITE REACTION [None]
  - INJECTION SITE STREAKING [None]
  - INJECTION SITE URTICARIA [None]
  - INJECTION SITE WARMTH [None]
